FAERS Safety Report 15496489 (Version 3)
Quarter: 2019Q1

REPORT INFORMATION
  Report Type: Report from Study
  Country: None (occurrence: CA)
  Receive Date: 20181012
  Receipt Date: 20190122
  Transmission Date: 20190417
  Serious: Yes (Hospitalization, Other)
  Sender: FDA-Public Use
  Company Number: CA-ABBVIE-18K-028-2512010-00

PATIENT
  Age: 44 Year
  Sex: Male

DRUGS (1)
  1. HUMIRA [Suspect]
     Active Substance: ADALIMUMAB
     Indication: CROHN^S DISEASE
     Route: 058
     Dates: start: 20180911, end: 20181023

REACTIONS (12)
  - Post procedural complication [Unknown]
  - Skin discolouration [Not Recovered/Not Resolved]
  - Crohn^s disease [Recovering/Resolving]
  - Injection site pain [Not Recovered/Not Resolved]
  - Intra-abdominal fluid collection [Unknown]
  - Mobility decreased [Not Recovered/Not Resolved]
  - Feeding disorder [Not Recovered/Not Resolved]
  - Nausea [Not Recovered/Not Resolved]
  - Hypoaesthesia [Not Recovered/Not Resolved]
  - Pyrexia [Recovered/Resolved]
  - Faecal vomiting [Not Recovered/Not Resolved]
  - Large intestine operation [Unknown]

NARRATIVE: CASE EVENT DATE: 20180911
